FAERS Safety Report 23468909 (Version 2)
Quarter: 2024Q1

REPORT INFORMATION
  Report Type: Spontaneous
  Country: DE (occurrence: DE)
  Receive Date: 20240202
  Receipt Date: 20240328
  Transmission Date: 20240410
  Serious: Yes (Hospitalization, Other)
  Sender: FDA-Public Use
  Company Number: DE-drreddys-SPO/GER/23/0182193

PATIENT
  Age: 69 Year
  Sex: Female

DRUGS (2)
  1. PREGABALIN [Suspect]
     Active Substance: PREGABALIN
     Indication: Product used for unknown indication
     Route: 048
  2. AMITRIPTYLINE [Suspect]
     Active Substance: AMITRIPTYLINE
     Indication: Product used for unknown indication

REACTIONS (5)
  - Lymphadenitis [Unknown]
  - Sialoadenitis [Unknown]
  - Salivary gland pain [Recovering/Resolving]
  - Salivary gland calculus [Unknown]
  - Sinusitis [Unknown]
